FAERS Safety Report 8989012 (Version 1)
Quarter: 2012Q4

REPORT INFORMATION
  Report Type: 
  Country: JP (occurrence: JP)
  Receive Date: 20121227
  Receipt Date: 20121227
  Transmission Date: 20130627
  Serious: Yes (Other)
  Sender: FDA-Public Use
  Company Number: JP-PFIZER INC-2012330297

PATIENT

DRUGS (3)
  1. CARDENALIN [Suspect]
     Indication: HYPERTENSION
     Dosage: UNK
     Route: 048
  2. AMLODIN [Concomitant]
     Indication: HYPERTENSION
     Dosage: UNK
  3. BLOPRESS [Concomitant]
     Indication: HYPERTENSION
     Dosage: UNK

REACTIONS (1)
  - Drug-induced liver injury [Unknown]
